FAERS Safety Report 24271523 (Version 3)
Quarter: 2024Q3

REPORT INFORMATION
  Report Type: Spontaneous
  Country: US (occurrence: US)
  Receive Date: 20240901
  Receipt Date: 20240923
  Transmission Date: 20241017
  Serious: No
  Sender: BAUSCH AND LOMB
  Company Number: US-BAUSCHBL-2024BNL032164

PATIENT
  Sex: Female

DRUGS (4)
  1. TIMOLOL MALEATE [Suspect]
     Active Substance: TIMOLOL MALEATE
     Indication: Product used for unknown indication
     Route: 065
     Dates: start: 202406
  2. TIMOLOL MALEATE [Suspect]
     Active Substance: TIMOLOL MALEATE
  3. CYCLOSPORINE [Concomitant]
     Active Substance: CYCLOSPORINE
     Indication: Product used for unknown indication
     Route: 065
  4. TAFLUPROST [Concomitant]
     Active Substance: TAFLUPROST
     Indication: Product used for unknown indication
     Route: 065

REACTIONS (7)
  - Eye pain [Unknown]
  - Eye injury [Unknown]
  - Product delivery mechanism issue [Unknown]
  - Product complaint [Unknown]
  - Injury [Unknown]
  - Product use complaint [Unknown]
  - Product container issue [Unknown]

NARRATIVE: CASE EVENT DATE: 20240101
